FAERS Safety Report 5544765-4 (Version None)
Quarter: 2007Q4

REPORT INFORMATION
  Report Type: 
  Country: None (occurrence: None)
  Receive Date: 20071210
  Receipt Date: 20070109
  Transmission Date: 20080405
  Serious: No
  Sender: FDA-Public Use
  Company Number: US-AMGEN-KDL206347

PATIENT
  Sex: Female

DRUGS (1)
  1. ENBREL [Suspect]
     Indication: RHEUMATOID ARTHRITIS
     Route: 058
     Dates: start: 20030121

REACTIONS (6)
  - BLOOD GLUCOSE ABNORMAL [None]
  - EYE DISORDER [None]
  - EYE INFLAMMATION [None]
  - EYE MOVEMENT DISORDER [None]
  - PHOTOPSIA [None]
  - VISION BLURRED [None]
